FAERS Safety Report 26043388 (Version 3)
Quarter: 2025Q4

REPORT INFORMATION
  Report Type: Spontaneous
  Country: JP (occurrence: JP)
  Receive Date: 20251113
  Receipt Date: 20251228
  Transmission Date: 20260118
  Serious: Yes (Death, Other)
  Sender: TAKEDA
  Company Number: JP-TAKEDA-2025TJP011602

PATIENT
  Age: 9 Decade
  Sex: Male

DRUGS (1)
  1. OBIZUR [Suspect]
     Active Substance: SUSOCTOCOG ALFA
     Indication: Haemostasis
     Dosage: 9000 INTERNATIONAL UNIT, Q12H
     Dates: start: 20251020, end: 20251029

REACTIONS (1)
  - Death [Fatal]
